FAERS Safety Report 9431896 (Version 2)
Quarter: 2013Q4

REPORT INFORMATION
  Report Type: Spontaneous
  Country: US (occurrence: US)
  Receive Date: 20130731
  Receipt Date: 20131025
  Transmission Date: 20140711
  Serious: Yes (Other)
  Sender: FDA-Public Use
  Company Number: PHEH2013US015965

PATIENT
  Sex: Female

DRUGS (5)
  1. DIOVAN [Suspect]
     Dosage: 320 MG, UNK
  2. METOPROLOL [Suspect]
  3. VERAPAMIL [Concomitant]
  4. LIVALO [Concomitant]
  5. AMLODIPINE [Concomitant]

REACTIONS (9)
  - Weight decreased [Unknown]
  - Glucose tolerance impaired [Unknown]
  - Alopecia [Recovered/Resolved]
  - Lethargy [Unknown]
  - Fatigue [Unknown]
  - Pain in extremity [Unknown]
  - Myalgia [Unknown]
  - Asthenia [Unknown]
  - Abdominal pain [Unknown]
